FAERS Safety Report 6605101-5 (Version None)
Quarter: 2010Q1

REPORT INFORMATION
  Report Type: 
  Country: None (occurrence: None)
  Receive Date: 20100226
  Receipt Date: 20100217
  Transmission Date: 20100710
  Serious: Yes (Hospitalization)
  Sender: FDA-Public Use
  Company Number: TR-ELI_LILLY_AND_COMPANY-TR201002004863

PATIENT
  Age: 63 Year
  Sex: Male

DRUGS (8)
  1. HUMULIN R [Suspect]
     Indication: DIABETES MELLITUS
     Dosage: 20 IU, EACH MORNING
     Route: 058
  2. HUMULIN R [Suspect]
     Dosage: 20 IU, OTHER
     Route: 058
     Dates: start: 19840101
  3. HUMULIN R [Suspect]
     Dosage: 20 IU, EACH EVENING
     Route: 058
     Dates: start: 19840101
  4. HUMULIN R [Suspect]
     Dosage: 20 IU, OTHER
     Route: 058
     Dates: start: 19840101
  5. HUMULIN N [Suspect]
     Indication: DIABETES MELLITUS
     Dosage: 20 IU, EACH MORNING
     Route: 058
  6. HUMULIN N [Suspect]
     Dosage: 20 IU, OTHER
     Route: 058
     Dates: start: 19840101
  7. HUMULIN N [Suspect]
     Dosage: 20 IU, EACH EVENING
     Route: 058
     Dates: start: 19840101
  8. HUMULIN N [Suspect]
     Dosage: 20 IU, OTHER
     Route: 058
     Dates: start: 19840101

REACTIONS (3)
  - OEDEMA PERIPHERAL [None]
  - POLLAKIURIA [None]
  - URINE COLOUR ABNORMAL [None]
